FAERS Safety Report 13212026 (Version 2)
Quarter: 2017Q1

REPORT INFORMATION
  Report Type: Report from Study
  Country: JP (occurrence: JP)
  Receive Date: 20170210
  Receipt Date: 20170223
  Transmission Date: 20170428
  Serious: Yes (Hospitalization)
  Sender: FDA-Public Use
  Company Number: JP-AMGEN-JPNCT2016185915

PATIENT
  Age: 68 Year
  Sex: Female
  Weight: 33.1 kg

DRUGS (16)
  1. LONSURF [Suspect]
     Active Substance: TIPIRACIL HYDROCHLORIDE\TRIFLURIDINE
     Indication: COLON CANCER
     Dosage: 35 MG/M2, BID
     Route: 048
     Dates: start: 20161102
  2. TAKEPRON [Concomitant]
     Active Substance: LANSOPRAZOLE
     Indication: ABDOMINAL DISCOMFORT
     Dosage: 15 MG, QD
     Route: 048
  3. CLARITH [Concomitant]
     Active Substance: CLARITHROMYCIN
     Indication: PROPHYLAXIS
     Dosage: 200 MG, BID
     Route: 048
     Dates: start: 20160928
  4. MYSER                              /01249201/ [Concomitant]
     Active Substance: DIFLUPREDNATE
     Indication: RASH
     Dosage: UNK
     Route: 062
     Dates: start: 20160928
  5. LONSURF [Suspect]
     Active Substance: TIPIRACIL HYDROCHLORIDE\TRIFLURIDINE
     Indication: COLON CANCER
     Dosage: 20 MG/M2, BID
     Route: 048
     Dates: start: 20160928
  6. HIRUDOID [Concomitant]
     Active Substance: GLYCOSAMINOGLYCANS
     Indication: RASH
     Dosage: UNK
     Route: 062
     Dates: start: 20160928
  7. PANITUMUMAB [Suspect]
     Active Substance: PANITUMUMAB
     Dosage: 4.8 MG/KG, Q2WK
     Route: 041
     Dates: start: 20161130, end: 20170111
  8. BLOPRESS [Concomitant]
     Active Substance: CANDESARTAN CILEXETIL
     Indication: HYPERTENSION
     Dosage: 4 MG, QD
     Route: 048
  9. CELECOX [Concomitant]
     Active Substance: CELECOXIB
     Dosage: 100 MG, BID
     Route: 048
  10. LOCOID [Concomitant]
     Active Substance: HYDROCORTISONE BUTYRATE
     Indication: RASH
     Dosage: UNK
     Route: 062
     Dates: start: 20160928
  11. DEXALTIN [Concomitant]
     Active Substance: DEXAMETHASONE
     Indication: STOMATITIS
     Dosage: UNK
     Route: 050
     Dates: start: 20160928
  12. LONSURF [Suspect]
     Active Substance: TIPIRACIL HYDROCHLORIDE\TRIFLURIDINE
     Dosage: 35 MG/M2, BID
     Route: 048
     Dates: start: 20161214
  13. CELECOX [Concomitant]
     Active Substance: CELECOXIB
     Indication: BACK PAIN
     Dosage: 100 MG, BID
     Route: 048
  14. TRAMCET [Concomitant]
     Active Substance: ACETAMINOPHEN\TRAMADOL
     Indication: BACK PAIN
     Dosage: 1 DF, TID
     Route: 048
  15. PANITUMUMAB [Suspect]
     Active Substance: PANITUMUMAB
     Indication: COLON CANCER
     Dosage: 6 MG/KG, Q2WK
     Route: 041
     Dates: start: 20160928, end: 20161102
  16. AZUNOL                             /00317302/ [Concomitant]
     Indication: STOMATITIS
     Dosage: UNK
     Route: 049
     Dates: start: 20160928

REACTIONS (11)
  - Vomiting [Unknown]
  - Febrile neutropenia [Recovered/Resolved]
  - Stomatitis [Unknown]
  - Fatigue [Unknown]
  - Decreased appetite [Unknown]
  - Alopecia [Unknown]
  - Abdominal pain [Unknown]
  - Anaemia [Recovered/Resolved]
  - Peripheral sensory neuropathy [Unknown]
  - Dermatitis acneiform [Unknown]
  - Diarrhoea [Unknown]

NARRATIVE: CASE EVENT DATE: 20160928
